FAERS Safety Report 26194603 (Version 2)
Quarter: 2025Q4

REPORT INFORMATION
  Report Type: Report from Study
  Country: CA (occurrence: CA)
  Receive Date: 20251224
  Receipt Date: 20251228
  Transmission Date: 20260117
  Serious: Yes (Hospitalization, Other)
  Sender: ABBVIE
  Company Number: CA-ABBVIE-6599319

PATIENT
  Age: 41 Year
  Sex: Female

DRUGS (4)
  1. RINVOQ [Suspect]
     Active Substance: UPADACITINIB
     Indication: Dermatitis atopic
     Dosage: FORM STRENGTH: 30MILLIGRAM
     Route: 048
  2. VALACYCLOVIR [Concomitant]
     Active Substance: VALACYCLOVIR HYDROCHLORIDE
     Indication: Product used for unknown indication
     Dosage: TIME INTERVAL: 0.33333333 DAYS: FOR ONE WEEK
     Route: 065
  3. CEPHALEXIN [Concomitant]
     Active Substance: CEPHALEXIN
     Indication: Product used for unknown indication
     Dosage: FOR SEVEN DAYS
     Route: 065
  4. DOXYCYCLINE [Concomitant]
     Active Substance: DOXYCYCLINE
     Indication: Product used for unknown indication
     Route: 065

REACTIONS (11)
  - Cellulitis [Unknown]
  - Herpes simplex test positive [Unknown]
  - Rash [Unknown]
  - Rash vesicular [Recovering/Resolving]
  - Abscess rupture [Recovering/Resolving]
  - Purulent discharge [Recovering/Resolving]
  - Wound complication [Recovering/Resolving]
  - Immunodeficiency [Recovering/Resolving]
  - Systemic lupus erythematosus [Recovering/Resolving]
  - Breast abscess [Unknown]
  - Subcutaneous abscess [Unknown]

NARRATIVE: CASE EVENT DATE: 20251101
